FAERS Safety Report 7279618-7 (Version None)
Quarter: 2011Q1

REPORT INFORMATION
  Report Type: 
  Country: None (occurrence: None)
  Receive Date: 20110208
  Receipt Date: 20110131
  Transmission Date: 20110831
  Serious: Yes (Other)
  Sender: FDA-Public Use
  Company Number: AU-AMGEN-AUSSP2011001963

PATIENT
  Age: 12 Year
  Sex: Female

DRUGS (3)
  1. LEFLUNOMIDE [Concomitant]
     Indication: JUVENILE ARTHRITIS
     Dosage: 20 MG, 1X/DAY
     Route: 048
     Dates: start: 20090401
  2. PIROXICAM [Concomitant]
     Indication: JUVENILE ARTHRITIS
     Dosage: 20 MG, 1X/DAY
     Route: 048
     Dates: start: 20070901
  3. ENBREL [Suspect]
     Indication: JUVENILE ARTHRITIS
     Dosage: 25 MG, 2X/WEEK
     Route: 058
     Dates: start: 20100202

REACTIONS (3)
  - ANXIETY [None]
  - URINARY TRACT INFECTION [None]
  - DELUSION [None]
